FAERS Safety Report 21306141 (Version 1)
Quarter: 2022Q3

REPORT INFORMATION
  Report Type: Spontaneous
  Country: US (occurrence: US)
  Receive Date: 20220908
  Receipt Date: 20220908
  Transmission Date: 20221027
  Serious: Yes (Other)
  Sender: FDA-Public Use
  Company Number: US-BRISTOL-MYERS SQUIBB COMPANY-2022-099660

PATIENT
  Age: 82 Year
  Sex: Male
  Weight: 93.44 kg

DRUGS (1)
  1. REVLIMID [Suspect]
     Active Substance: LENALIDOMIDE
     Indication: Myelodysplastic syndrome
     Dosage: 3W, 1W OFF
     Route: 048
     Dates: start: 20201101

REACTIONS (4)
  - Wound infection [Unknown]
  - Skin laceration [Unknown]
  - Fall [Unknown]
  - Skin discolouration [Unknown]
